FAERS Safety Report 9058771 (Version 7)
Quarter: 2014Q2

REPORT INFORMATION
  Report Type: Report from Study
  Country: CA (occurrence: CA)
  Receive Date: 20130122
  Receipt Date: 20140403
  Transmission Date: 20141212
  Serious: Yes (Death, Other)
  Sender: FDA-Public Use
  Company Number: PHHY2012CA002188

PATIENT
  Age: 79 Year
  Sex: Female

DRUGS (11)
  1. ACLASTA [Suspect]
     Indication: OSTEOPOROSIS POSTMENOPAUSAL
     Dosage: UNK
     Route: 042
     Dates: start: 20090127
  2. ACLASTA [Suspect]
     Dosage: UNK
     Route: 042
     Dates: start: 20100129
  3. ACLASTA [Suspect]
     Dosage: UNK
     Route: 042
     Dates: start: 20110222
  4. ACLASTA [Suspect]
     Dosage: UNK
     Route: 042
     Dates: start: 20120223
  5. ACLASTA [Suspect]
     Dosage: UNK
     Route: 042
     Dates: start: 20130320
  6. ADALAT XL [Concomitant]
  7. AVALIDE [Concomitant]
  8. SYNTHROID [Concomitant]
  9. LOMANOR [Concomitant]
  10. ESTRACE [Concomitant]
     Dosage: UNK UKN, UNK
     Dates: end: 2012
  11. METOPROLOL [Concomitant]
     Dosage: 100 MG, QD

REACTIONS (7)
  - Death [Fatal]
  - Lung adenocarcinoma metastatic [Unknown]
  - Lymphoma [Unknown]
  - Pulmonary mass [Unknown]
  - Breast cancer [Unknown]
  - Metastases to central nervous system [Unknown]
  - Poor venous access [Unknown]
